FAERS Safety Report 22310880 (Version 1)
Quarter: 2023Q2

REPORT INFORMATION
  Report Type: Spontaneous
  Country: None (occurrence: FR)
  Receive Date: 20230511
  Receipt Date: 20230511
  Transmission Date: 20230721
  Serious: Yes (Life-Threatening, Other)
  Sender: FDA-Public Use
  Company Number: FR-B.Braun Medical Inc.-2141365

PATIENT
  Age: 63 Year
  Sex: Male
  Weight: 95 kg

DRUGS (8)
  1. CEFUROXIME SODIUM [Suspect]
     Active Substance: CEFUROXIME SODIUM
     Indication: Antibiotic prophylaxis
  2. LIDOCAINE [Suspect]
     Active Substance: LIDOCAINE
  3. SUFENTANIL [Suspect]
     Active Substance: SUFENTANIL
  4. PROPOFOL [Suspect]
     Active Substance: PROPOFOL
  5. MIDAZOLAM [Suspect]
     Active Substance: MIDAZOLAM
  6. CISATRACURIUM [Suspect]
     Active Substance: CISATRACURIUM
  7. NEOSTIGMINE. [Suspect]
     Active Substance: NEOSTIGMINE METHYLSULFATE
  8. ATROPINE [Suspect]
     Active Substance: ATROPINE

REACTIONS (4)
  - Tachycardia [Recovered/Resolved]
  - Cardiac arrest [Recovered/Resolved]
  - Acute pulmonary oedema [Recovered/Resolved]
  - Hypertension [Recovered/Resolved]
